FAERS Safety Report 6170256-6 (Version None)
Quarter: 2009Q2

REPORT INFORMATION
  Report Type: 
  Country: None (occurrence: None)
  Receive Date: 20090427
  Receipt Date: 20090427
  Transmission Date: 20091009
  Serious: No
  Sender: FDA-Public Use
  Company Number: None

PATIENT
  Sex: Male
  Weight: 17.7 kg

DRUGS (1)
  1. BANZEL [Suspect]
     Indication: CONVULSION
     Dosage: 200MG BID PO
     Route: 048
     Dates: start: 20090406, end: 20090410

REACTIONS (2)
  - MIDDLE INSOMNIA [None]
  - SINUSITIS [None]
